FAERS Safety Report 11126078 (Version 1)
Quarter: 2015Q2

REPORT INFORMATION
  Report Type: Other
  Country: SA (occurrence: SA)
  Receive Date: 20150520
  Receipt Date: 20150520
  Transmission Date: 20150821
  Serious: Yes (Hospitalization)
  Sender: FDA-Public Use
  Company Number: SA-ENDO PHARMACEUTICALS INC-2015-000898

PATIENT
  Age: 52 Year
  Sex: Male

DRUGS (5)
  1. CICLOSPORIN [Concomitant]
     Active Substance: CYCLOSPORINE
     Dosage: DOSE WAS ADJUSTED
     Route: 065
     Dates: start: 2004
  2. MYCOPHENOLATE MOFETIL TABLETS [Suspect]
     Active Substance: MYCOPHENOLATE MOFETIL
     Indication: IMMUNOSUPPRESSANT DRUG THERAPY
     Route: 065
     Dates: start: 200408, end: 2004
  3. CICLOSPORIN [Concomitant]
     Active Substance: CYCLOSPORINE
     Indication: IMMUNOSUPPRESSANT DRUG THERAPY
     Route: 065
     Dates: start: 200408, end: 2004
  4. PREDNISOLONE ORAL SOLUTION [Concomitant]
     Active Substance: PREDNISOLONE
     Indication: IMMUNOSUPPRESSANT DRUG THERAPY
     Route: 065
     Dates: start: 200408
  5. MYCOPHENOLATE MOFETIL TABLETS [Suspect]
     Active Substance: MYCOPHENOLATE MOFETIL
     Route: 065
     Dates: start: 2004, end: 2004

REACTIONS (1)
  - Colonic pseudo-obstruction [Recovered/Resolved]

NARRATIVE: CASE EVENT DATE: 200408
